FAERS Safety Report 6728672-7 (Version None)
Quarter: 2010Q2

REPORT INFORMATION
  Report Type: 
  Country: None (occurrence: None)
  Receive Date: 20100517
  Receipt Date: 20100505
  Transmission Date: 20101027
  Serious: Yes (Other)
  Sender: FDA-Public Use
  Company Number: US-WYE-H14973410

PATIENT
  Sex: Female
  Weight: 69.46 kg

DRUGS (6)
  1. EFFEXOR XR [Suspect]
     Indication: DEPRESSION
     Route: 048
     Dates: start: 19980101, end: 20100401
  2. ENBREL [Concomitant]
     Indication: PSORIASIS
  3. ALPRAZOLAM [Concomitant]
  4. PRISTIQ [Suspect]
     Indication: DEPRESSION
     Route: 048
     Dates: start: 20100401, end: 20100504
  5. PRISTIQ [Suspect]
     Route: 048
     Dates: start: 20100505
  6. OMEPRAZOLE [Concomitant]

REACTIONS (9)
  - CONDITION AGGRAVATED [None]
  - CRYING [None]
  - DIZZINESS [None]
  - DRUG WITHDRAWAL SYNDROME [None]
  - EMOTIONAL DISORDER [None]
  - FEELING ABNORMAL [None]
  - HYPOTHYROIDISM [None]
  - PANIC REACTION [None]
  - WEIGHT INCREASED [None]
